FAERS Safety Report 10454471 (Version 1)
Quarter: 2014Q3

REPORT INFORMATION
  Report Type: Spontaneous
  Country: US (occurrence: US)
  Receive Date: 20140915
  Receipt Date: 20140915
  Transmission Date: 20150326
  Serious: No
  Sender: FDA-Public Use
  Company Number: US-BRISTOL-MYERS SQUIBB COMPANY-19502004

PATIENT
  Age: 64 Year
  Sex: Female
  Weight: 87.07 kg

DRUGS (11)
  1. PRAVASTATIN SODIUM. [Concomitant]
     Active Substance: PRAVASTATIN SODIUM
  2. POTASSIUM [Concomitant]
     Active Substance: POTASSIUM
  3. FLEXERIL [Concomitant]
     Active Substance: CYCLOBENZAPRINE HYDROCHLORIDE
  4. VITAMIN [Concomitant]
     Active Substance: VITAMINS
  5. ONGLYZA [Suspect]
     Active Substance: SAXAGLIPTIN HYDROCHLORIDE
     Dates: start: 201306
  6. INSULIN 70/30 [Concomitant]
     Active Substance: INSULIN HUMAN
     Dosage: 1DF:25U SQ DAILY AND 20U SQ DAILY
     Route: 058
  7. LISINOPRIL AND HYDROCHLOROTHIAZIDE [Concomitant]
     Active Substance: HYDROCHLOROTHIAZIDE\LISINOPRIL
     Dosage: 1DF:20/12.5MG
  8. MELOXICAM. [Concomitant]
     Active Substance: MELOXICAM
  9. FERROUS SULFATE [Concomitant]
     Active Substance: FERROUS SULFATE\FERROUS SULFATE, DRIED
  10. ASPIRIN. [Concomitant]
     Active Substance: ASPIRIN
  11. FISH OIL [Concomitant]
     Active Substance: FISH OIL

REACTIONS (1)
  - Blood glucose decreased [Unknown]
